FAERS Safety Report 4859021-7 (Version None)
Quarter: 2005Q4

REPORT INFORMATION
  Report Type: 
  Country: None (occurrence: None)
  Receive Date: 20051219
  Receipt Date: 20050907
  Transmission Date: 20060501
  Serious: No
  Sender: FDA-Public Use
  Company Number: US-GLAXOSMITHKLINE-A0573236A

PATIENT
  Age: 41 Year

DRUGS (2)
  1. EQUATE NTS 14MG [Suspect]
     Dates: start: 20050905
  2. HYDROCODONE [Concomitant]

REACTIONS (1)
  - DYSGEUSIA [None]
